FAERS Safety Report 18216618 (Version 3)
Quarter: 2020Q3

REPORT INFORMATION
  Report Type: Spontaneous
  Country: JP (occurrence: JP)
  Receive Date: 20200901
  Receipt Date: 20200923
  Transmission Date: 20201103
  Serious: Yes (Death, Hospitalization)
  Sender: FDA-Public Use
  Company Number: JP-ROCHE-2668873

PATIENT
  Age: 25 Year
  Sex: Female

DRUGS (6)
  1. PREVYMIS [Concomitant]
     Active Substance: LETERMOVIR
  2. PREDONINE [Concomitant]
     Active Substance: PREDNISOLONE
  3. AMPHOTERICIN B. [Concomitant]
     Active Substance: AMPHOTERICIN B
  4. VITAMIN C [Concomitant]
     Active Substance: ASCORBIC ACID
  5. VALIXA [Suspect]
     Active Substance: VALGANCICLOVIR
     Indication: PRODUCT USED FOR UNKNOWN INDICATION
     Dosage: 450 MILLIGRAM
     Route: 048
  6. DENOSINE (JAPAN) [Suspect]
     Active Substance: GANCICLOVIR
     Indication: PRODUCT USED FOR UNKNOWN INDICATION
     Dosage: SOLUTION FOR INFUSION?500 MILLIGRAM
     Route: 041

REACTIONS (7)
  - Dyspnoea [Unknown]
  - Death [Fatal]
  - Lymphopenia [Unknown]
  - Red blood cell count decreased [Unknown]
  - Pneumonia [Unknown]
  - Platelet count decreased [Unknown]
  - Mucormycosis [Unknown]
